FAERS Safety Report 20608577 (Version 1)
Quarter: 2022Q1

REPORT INFORMATION
  Report Type: Spontaneous
  Country: FR (occurrence: FR)
  Receive Date: 20220317
  Receipt Date: 20220317
  Transmission Date: 20220423
  Serious: Yes (Hospitalization, Congenital Anomaly, Other)
  Sender: FDA-Public Use
  Company Number: FR-ABBVIE-22K-056-4319771-00

PATIENT
  Sex: Male
  Weight: 3.25 kg

DRUGS (2)
  1. VALPROATE SODIUM [Suspect]
     Active Substance: VALPROATE SODIUM
     Indication: Maternal exposure timing unspecified
     Route: 064
  2. FOLIC ACID [Concomitant]
     Active Substance: FOLIC ACID
     Indication: Product used for unknown indication

REACTIONS (17)
  - Foetal anticonvulsant syndrome [Unknown]
  - Autism spectrum disorder [Unknown]
  - Talipes [Unknown]
  - Memory impairment [Unknown]
  - Loss of personal independence in daily activities [Unknown]
  - Language disorder [Unknown]
  - Joint hyperextension [Unknown]
  - Psychomotor retardation [Unknown]
  - Fine motor skill dysfunction [Unknown]
  - Disorientation [Unknown]
  - Psychomotor skills impaired [Unknown]
  - Ocular discomfort [Unknown]
  - Hypotonia [Unknown]
  - Ear, nose and throat disorder [Unknown]
  - Disturbance in attention [Unknown]
  - Aggression [Unknown]
  - Foetal exposure during pregnancy [Unknown]
